FAERS Safety Report 16025725 (Version 1)
Quarter: 2019Q1

REPORT INFORMATION
  Report Type: Report from Study
  Country: ES (occurrence: ES)
  Receive Date: 20190302
  Receipt Date: 20190302
  Transmission Date: 20190418
  Serious: Yes (Life-Threatening, Hospitalization)
  Sender: FDA-Public Use
  Company Number: ES-ACCORD-110219

PATIENT
  Age: 64 Year
  Sex: Male

DRUGS (3)
  1. ALLOPURINOL. [Concomitant]
     Active Substance: ALLOPURINOL
     Indication: HYPERURICAEMIA
     Dosage: 100MG EVERY 24 HOURS
     Route: 048
     Dates: start: 20111118
  2. TEICOPLANIN [Suspect]
     Active Substance: TEICOPLANIN
     Indication: INFECTED SKIN ULCER
     Dosage: 200MG EVERY 12 HOURS
     Route: 042
     Dates: start: 20170803, end: 20170814
  3. FUROSEMIDE. [Suspect]
     Active Substance: FUROSEMIDE
     Indication: HYPERTENSION
     Dosage: 20MG EVERY 6 HOURS
     Route: 042
     Dates: start: 20170810, end: 20170824

REACTIONS (1)
  - Renal failure [Recovered/Resolved]

NARRATIVE: CASE EVENT DATE: 20170810
